FAERS Safety Report 10699470 (Version 2)
Quarter: 2015Q3

REPORT INFORMATION
  Report Type: Spontaneous
  Country: US (occurrence: US)
  Receive Date: 20150109
  Receipt Date: 20150701
  Transmission Date: 20151125
  Serious: Yes (Disabling, Other)
  Sender: FDA-Public Use
  Company Number: US-UCBSA-2015000655

PATIENT
  Sex: Female
  Weight: 113.4 kg

DRUGS (3)
  1. VIMPAT [Suspect]
     Active Substance: LACOSAMIDE
     Indication: SEIZURE
     Dosage: 200 MG, 2X/DAY (BID)
     Dates: start: 2014
  2. CLONAZEPAM. [Concomitant]
     Active Substance: CLONAZEPAM
     Indication: PRODUCT USED FOR UNKNOWN INDICATION
     Dosage: 1 MG AT NIGHT
  3. KEPPRA [Suspect]
     Active Substance: LEVETIRACETAM
     Indication: SEIZURE
     Dosage: 750 MG, 2X/DAY (BID)
     Dates: start: 2011

REACTIONS (4)
  - Brain mass [Recovering/Resolving]
  - Peroneal nerve palsy [Recovering/Resolving]
  - Neuralgia [Unknown]
  - Partial seizures [Recovering/Resolving]

NARRATIVE: CASE EVENT DATE: 2011
